FAERS Safety Report 25852246 (Version 1)
Quarter: 2025Q3

REPORT INFORMATION
  Report Type: Spontaneous
  Country: US (occurrence: None)
  Receive Date: 20250925
  Receipt Date: 20250925
  Transmission Date: 20251021
  Serious: Yes (Hospitalization, Other)
  Sender: FDA-CTU
  Company Number: None

PATIENT
  Age: 31 Year
  Sex: Male
  Weight: 63.9 kg

DRUGS (5)
  1. RISPERIDONE [Suspect]
     Active Substance: RISPERIDONE
     Indication: Schizophrenia
     Dosage: FREQUENCY : AT BEDTIME;?
     Route: 048
     Dates: start: 20250626, end: 20250717
  2. RISPERIDONE [Concomitant]
     Active Substance: RISPERIDONE
  3. LORAZEPAM [Concomitant]
     Active Substance: LORAZEPAM
  4. HALOPERIDOL [Concomitant]
     Active Substance: HALOPERIDOL
  5. benzetropine [Concomitant]

REACTIONS (6)
  - Therapy change [None]
  - Erection increased [None]
  - Therapy cessation [None]
  - Refusal of treatment by patient [None]
  - Anxiety [None]
  - Fear [None]

NARRATIVE: CASE EVENT DATE: 20250716
